FAERS Safety Report 10803179 (Version 4)
Quarter: 2015Q3

REPORT INFORMATION
  Report Type: Spontaneous
  Country: JP (occurrence: JP)
  Receive Date: 20150217
  Receipt Date: 20150702
  Transmission Date: 20151125
  Serious: Yes (Death, Other)
  Sender: FDA-Public Use
  Company Number: JP-GILEAD-2015-0137375

PATIENT
  Age: 80 Year
  Sex: Male
  Weight: 56 kg

DRUGS (16)
  1. NIFEDIPINE LA [Concomitant]
  2. LANTUS [Concomitant]
     Active Substance: INSULIN GLARGINE
  3. SPRYCEL [Suspect]
     Active Substance: DASATINIB
     Indication: PHILADELPHIA CHROMOSOME POSITIVE
     Dosage: 50 MG, BID
     Route: 048
     Dates: start: 20140624, end: 20140728
  4. LANSOPRAZOLE. [Concomitant]
     Active Substance: LANSOPRAZOLE
  5. SPIRONOLACTONE. [Concomitant]
     Active Substance: SPIRONOLACTONE
  6. URSO [Concomitant]
     Active Substance: URSODIOL
  7. BARACLUDE [Concomitant]
     Active Substance: ENTECAVIR
     Dosage: UNK
     Dates: start: 201405
  8. MAGMITT [Concomitant]
     Active Substance: MAGNESIUM OXIDE
  9. VIREAD [Suspect]
     Active Substance: TENOFOVIR DISOPROXIL FUMARATE
     Indication: HEPATITIS B
     Dosage: 300 MG, QD
     Route: 048
     Dates: start: 20141205, end: 20150302
  10. SPRYCEL [Suspect]
     Active Substance: DASATINIB
     Indication: ACUTE LYMPHOCYTIC LEUKAEMIA
     Dosage: 50 MG, QD
     Route: 048
     Dates: start: 20140729, end: 201411
  11. DECADRON [Concomitant]
     Active Substance: DEXAMETHASONE
  12. SENNARIDE [Concomitant]
     Active Substance: SENNOSIDES A AND B
  13. FEBURIC [Concomitant]
     Active Substance: FEBUXOSTAT
  14. SPRYCEL [Suspect]
     Active Substance: DASATINIB
     Dosage: 50 MG, BID
     Route: 048
     Dates: start: 201411, end: 20150302
  15. NOVORAPID [Concomitant]
     Active Substance: INSULIN ASPART
  16. AZILVA [Concomitant]
     Active Substance: AZILSARTAN KAMEDOXOMIL

REACTIONS (10)
  - Cognitive disorder [Unknown]
  - Dehydration [Unknown]
  - Leukoencephalopathy [Recovering/Resolving]
  - Acute kidney injury [Fatal]
  - Altered state of consciousness [Recovered/Resolved]
  - Decreased appetite [Unknown]
  - Feeding disorder [Unknown]
  - Somnolence [Recovered/Resolved]
  - Hypotension [Unknown]
  - Gait disturbance [Recovered/Resolved]

NARRATIVE: CASE EVENT DATE: 20141220
